FAERS Safety Report 4971889-2 (Version None)
Quarter: 2006Q2

REPORT INFORMATION
  Report Type: 
  Country: None (occurrence: None)
  Receive Date: 20060413
  Receipt Date: 20050318
  Transmission Date: 20061013
  Serious: Yes (Death, Hospitalization, Other)
  Sender: FDA-Public Use
  Company Number: US-MERCK-0503USA03841

PATIENT
  Age: 67 Year
  Sex: Female
  Weight: 70 kg

DRUGS (11)
  1. VIOXX [Suspect]
     Indication: OSTEOARTHRITIS
     Route: 048
     Dates: start: 20010101, end: 20040723
  2. VIOXX [Suspect]
     Route: 048
     Dates: start: 20010101, end: 20040723
  3. CARDIZEM [Concomitant]
     Route: 065
  4. ALTACE [Concomitant]
     Route: 065
  5. TOPROL-XL [Concomitant]
     Route: 065
  6. FOSAMAX [Concomitant]
     Route: 065
  7. SEREVENT [Concomitant]
     Route: 065
  8. OXYGEN [Concomitant]
     Route: 065
  9. TYLENOL (CAPLET) [Concomitant]
     Route: 065
  10. ALEVE [Concomitant]
     Route: 065
  11. CYANOCOBALAMIN [Concomitant]
     Route: 065

REACTIONS (24)
  - ASTHENIA [None]
  - CEREBROVASCULAR ACCIDENT [None]
  - DIZZINESS [None]
  - DRY MOUTH [None]
  - DYSARTHRIA [None]
  - DYSPNOEA EXERTIONAL [None]
  - FACIAL PARESIS [None]
  - GANGLION [None]
  - HEADACHE [None]
  - HEMIPARESIS [None]
  - KYPHOSIS [None]
  - MEMORY IMPAIRMENT [None]
  - MENTAL IMPAIRMENT [None]
  - MUSCULOSKELETAL STIFFNESS [None]
  - MYOCARDIAL INFARCTION [None]
  - NOCTURIA [None]
  - NOCTURNAL DYSPNOEA [None]
  - OEDEMA PERIPHERAL [None]
  - PHARYNGOLARYNGEAL PAIN [None]
  - POLLAKIURIA [None]
  - RHEUMATOID ARTHRITIS [None]
  - TEMPERATURE INTOLERANCE [None]
  - WEIGHT INCREASED [None]
  - WHEEZING [None]
